FAERS Safety Report 9867503 (Version 1)
Quarter: 2014Q1

REPORT INFORMATION
  Report Type: Spontaneous
  Country: US (occurrence: None)
  Receive Date: 20140203
  Receipt Date: 20140203
  Transmission Date: 20141002
  Serious: Yes (Death)
  Sender: FDA-Public Use
  Company Number: None

PATIENT
  Sex: Male
  Weight: 5.91 kg

DRUGS (1)
  1. SYNAGIS [Suspect]
     Dosage: BASED ON PREDICTED WEIGHT) EVERY 28-30 DAYS
     Route: 030
     Dates: start: 20131213, end: 20140109

REACTIONS (1)
  - Death [None]
